FAERS Safety Report 17870846 (Version 1)
Quarter: 2020Q2

REPORT INFORMATION
  Report Type: Spontaneous
  Country: US (occurrence: US)
  Receive Date: 20200605
  Receipt Date: 20200605
  Transmission Date: 20200714
  Serious: Yes (Hospitalization)
  Sender: FDA-Public Use
  Company Number: None

PATIENT
  Sex: Male

DRUGS (7)
  1. BUPRPN HCT [Concomitant]
  2. SERTRALINE [Concomitant]
     Active Substance: SERTRALINE HYDROCHLORIDE
  3. METHOREXATE [Concomitant]
     Active Substance: METHOTREXATE SODIUM
  4. ELIGARD [Concomitant]
     Active Substance: LEUPROLIDE ACETATE
  5. FOLIC ACID. [Concomitant]
     Active Substance: FOLIC ACID
  6. METOPROLOL SUC [Concomitant]
  7. HUMIRA [Suspect]
     Active Substance: ADALIMUMAB
     Indication: PSORIATIC ARTHROPATHY
     Route: 058
     Dates: start: 20180928

REACTIONS (1)
  - Knee arthroplasty [None]
